FAERS Safety Report 23029028 (Version 1)
Quarter: 2023Q4

REPORT INFORMATION
  Report Type: Spontaneous
  Country: US (occurrence: None)
  Receive Date: 20231004
  Receipt Date: 20231004
  Transmission Date: 20240109
  Serious: Yes (Life-Threatening)
  Sender: FDA-Public Use
  Company Number: None

PATIENT
  Age: 92 Year

DRUGS (10)
  1. POMALYST [Suspect]
     Active Substance: POMALIDOMIDE
     Route: 048
     Dates: start: 20220722
  2. FISH OIL [Concomitant]
     Active Substance: FISH OIL
  3. VITAMIN C [Concomitant]
     Active Substance: ASCORBIC ACID
  4. ASPIRIN [Concomitant]
     Active Substance: ASPIRIN
  5. FINASTERIDE [Concomitant]
     Active Substance: FINASTERIDE
  6. LEVOTHYROXINE [Concomitant]
     Active Substance: LEVOTHYROXINE
  7. OMEPRAZOLE [Concomitant]
  8. ACYCLOVIR [Concomitant]
     Active Substance: ACYCLOVIR
  9. DEXAMETHASONE [Concomitant]
     Active Substance: DEXAMETHASONE
  10. MONTELUKAST [Concomitant]
     Active Substance: MONTELUKAST SODIUM

REACTIONS (2)
  - Therapy change [None]
  - Neutropenia [None]

NARRATIVE: CASE EVENT DATE: 20230901
